FAERS Safety Report 4349874-3 (Version None)
Quarter: 2004Q2

REPORT INFORMATION
  Report Type: 
  Country: None (occurrence: None)
  Receive Date: 20040428
  Receipt Date: 20040428
  Transmission Date: 20050107
  Serious: No
  Sender: FDA-Public Use
  Company Number: None

PATIENT
  Sex: Female
  Weight: 59 kg

DRUGS (4)
  1. POLYMYXIN B (PFIZER) 500,000 U [Suspect]
     Indication: CYSTIC FIBROSIS
     Dosage: 750, 000 U IV Q 24H DECREASE 500, 000 U IV Q 24
     Route: 042
     Dates: start: 20040417, end: 20040425
  2. POLYMYXIN B (PFIZER) 500,000 U [Suspect]
     Indication: LUNG TRANSPLANT
     Dosage: 750, 000 U IV Q 24H DECREASE 500, 000 U IV Q 24
     Route: 042
     Dates: start: 20040417, end: 20040425
  3. POLYMYXIN B (PFIZER) 500,000 U [Suspect]
     Indication: CYSTIC FIBROSIS
     Dosage: 750, 000 U IV Q 24H DECREASE 500, 000 U IV Q 24
     Route: 042
     Dates: start: 20040426, end: 20040518
  4. POLYMYXIN B (PFIZER) 500,000 U [Suspect]
     Indication: LUNG TRANSPLANT
     Dosage: 750, 000 U IV Q 24H DECREASE 500, 000 U IV Q 24
     Route: 042
     Dates: start: 20040426, end: 20040518

REACTIONS (2)
  - NEUROMYOPATHY [None]
  - TRANSPLANT [None]
